FAERS Safety Report 21491270 (Version 2)
Quarter: 2023Q2

REPORT INFORMATION
  Report Type: Spontaneous
  Country: US (occurrence: US)
  Receive Date: 20221021
  Receipt Date: 20230410
  Transmission Date: 20230721
  Serious: Yes (Other)
  Sender: FDA-Public Use
  Company Number: US-CELLTRION INC.-2022US010383

PATIENT

DRUGS (20)
  1. INFLECTRA [Suspect]
     Active Substance: INFLIXIMAB-DYYB
     Indication: Product used for unknown indication
     Dosage: 320 MG
     Route: 065
     Dates: start: 202109
  2. INFLECTRA [Suspect]
     Active Substance: INFLIXIMAB-DYYB
     Dosage: 320 MG
     Dates: start: 202110
  3. INFLECTRA [Suspect]
     Active Substance: INFLIXIMAB-DYYB
     Dosage: UNK
     Dates: start: 202111
  4. INFLECTRA [Suspect]
     Active Substance: INFLIXIMAB-DYYB
     Dosage: 530.0 MG
     Dates: start: 20220311
  5. INFLECTRA [Suspect]
     Active Substance: INFLIXIMAB-DYYB
     Dosage: 530.0 MG
     Dates: start: 20220422
  6. METHOTREXATE [Concomitant]
     Active Substance: METHOTREXATE
     Indication: Product used for unknown indication
     Dosage: A LOW DOSE OF 7.5 MG A WEEK
     Route: 048
  7. METHOTREXATE [Concomitant]
     Active Substance: METHOTREXATE
     Dosage: 8 TABLETS A WEEK
     Route: 048
  8. METHOTREXATE [Concomitant]
     Active Substance: METHOTREXATE
     Dosage: MAINTAINED METHOTREXATE
     Route: 048
     Dates: start: 201903
  9. METHOTREXATE [Concomitant]
     Active Substance: METHOTREXATE
     Dosage: INCREASED TO 20MG WEEKLY
     Route: 048
     Dates: start: 202006
  10. PREDNISONE [Concomitant]
     Active Substance: PREDNISONE
     Indication: Product used for unknown indication
     Dosage: 5 MG, ONCE A DAY AS NEEDED
     Dates: start: 201906
  11. PREDNISONE [Concomitant]
     Active Substance: PREDNISONE
     Dosage: A FEW TIMES A WEEK
     Dates: start: 201911
  12. PREDNISONE [Concomitant]
     Active Substance: PREDNISONE
     Dosage: 7.5
     Dates: start: 202101
  13. PREDNISONE [Concomitant]
     Active Substance: PREDNISONE
     Dosage: 10 UNK
     Dates: start: 202101
  14. PREDNISONE [Concomitant]
     Active Substance: PREDNISONE
     Dosage: 5 UNK
     Dates: start: 202103
  15. PREDNISONE [Concomitant]
     Active Substance: PREDNISONE
     Dosage: 10 MG, DAILY
     Dates: start: 202109
  16. BENADRYL [Concomitant]
     Active Substance: DIPHENHYDRAMINE HYDROCHLORIDE
     Indication: Product used for unknown indication
     Dosage: 25 MG
     Dates: start: 20220311
  17. TYLENOL [Concomitant]
     Active Substance: ACETAMINOPHEN
     Indication: Product used for unknown indication
     Dosage: 1000 MG
     Dates: start: 20220311
  18. TYLENOL [Concomitant]
     Active Substance: ACETAMINOPHEN
     Dosage: 1000 MG
     Dates: start: 20220422
  19. ZYRTEC [Concomitant]
     Active Substance: CETIRIZINE HYDROCHLORIDE
     Indication: Product used for unknown indication
     Dosage: 10 MG
     Dates: start: 20220311
  20. ZYRTEC [Concomitant]
     Active Substance: CETIRIZINE HYDROCHLORIDE
     Dosage: 10 MG
     Dates: start: 20220422

REACTIONS (3)
  - Cutaneous vasculitis [Unknown]
  - Weight decreased [Unknown]
  - Drug ineffective [Unknown]
